FAERS Safety Report 7814616-3 (Version None)
Quarter: 2011Q4

REPORT INFORMATION
  Report Type: 
  Country: None (occurrence: None)
  Receive Date: 20111013
  Receipt Date: 20111013
  Transmission Date: 20120403
  Serious: No
  Sender: FDA-Public Use
  Company Number: None

PATIENT
  Sex: Female
  Weight: 54.2956 kg

DRUGS (1)
  1. DROSPIRENONE AND ETHINYL ESTRADIOL [Suspect]
     Indication: CONTRACEPTION
     Dosage: 1 PILL EVERY DAY BY MOUTH
     Route: 048
     Dates: start: 20090501

REACTIONS (7)
  - FATIGUE [None]
  - NAUSEA [None]
  - VOMITING [None]
  - MIGRAINE [None]
  - PAIN [None]
  - MALAISE [None]
  - ABDOMINAL PAIN UPPER [None]
